FAERS Safety Report 5330114-3 (Version None)
Quarter: 2007Q2

REPORT INFORMATION
  Report Type: 
  Country: None (occurrence: None)
  Receive Date: 20070514
  Receipt Date: 20070501
  Transmission Date: 20071010
  Serious: Yes (Death, Hospitalization)
  Sender: FDA-Public Use
  Company Number: 2006140937

PATIENT
  Age: 58 Year
  Sex: Female

DRUGS (7)
  1. BENADRYL [Suspect]
     Indication: SUICIDE ATTEMPT
  2. ABILIFY [Suspect]
     Indication: SUICIDE ATTEMPT
  3. EFFEXOR [Suspect]
     Indication: SUICIDE ATTEMPT
  4. CLONAZEPAM [Suspect]
     Indication: SUICIDE ATTEMPT
  5. UNISOM [Suspect]
     Indication: SUICIDE ATTEMPT
  6. PHENCYCLIDINE ( PHENCYCLIDINE) [Suspect]
  7. CHARCOAL ACTIVATED (CHARCOAL ACTIVATED) [Suspect]

REACTIONS (10)
  - ARRHYTHMIA [None]
  - ASPIRATION [None]
  - BLOOD PH DECREASED [None]
  - CARDIO-RESPIRATORY ARREST [None]
  - ELECTROCARDIOGRAM T WAVE INVERSION [None]
  - LOSS OF CONSCIOUSNESS [None]
  - LUNG INFILTRATION [None]
  - MYOCARDIAL INFARCTION [None]
  - SUICIDE ATTEMPT [None]
  - TOXICOLOGIC TEST ABNORMAL [None]
